FAERS Safety Report 5275006-3 (Version None)
Quarter: 2007Q1

REPORT INFORMATION
  Report Type: 
  Country: None (occurrence: None)
  Receive Date: 20070325
  Receipt Date: 20070313
  Transmission Date: 20070707
  Serious: Yes (Hospitalization)
  Sender: FDA-Public Use
  Company Number: FR-ABBOTT-07P-056-0361749-00

PATIENT
  Age: 94 Year
  Sex: Female
  Weight: 52 kg

DRUGS (6)
  1. LIPANTHYL MICRONISE CAPSULES [Suspect]
     Indication: DRUG USE FOR UNKNOWN INDICATION
     Route: 048
  2. LANSOPRAZOLE [Suspect]
     Indication: DRUG USE FOR UNKNOWN INDICATION
     Route: 048
  3. PREVISCAN [Interacting]
     Indication: DRUG USE FOR UNKNOWN INDICATION
     Route: 048
  4. FUROSEMIDE [Concomitant]
     Indication: HYPERTENSION
     Route: 048
  5. PRAZOSIN HCL [Concomitant]
     Indication: HYPERTENSION
     Route: 048
  6. RILMENIDINE [Concomitant]
     Indication: HYPERTENSION
     Route: 048

REACTIONS (5)
  - DRUG INTERACTION [None]
  - FALL [None]
  - LABORATORY TEST ABNORMAL [None]
  - PROTHROMBIN TIME SHORTENED [None]
  - SUBCUTANEOUS HAEMATOMA [None]
